FAERS Safety Report 8396561-0 (Version None)
Quarter: 2012Q2

REPORT INFORMATION
  Report Type: 
  Country: None (occurrence: None)
  Receive Date: 20120530
  Receipt Date: 20120517
  Transmission Date: 20120825
  Serious: Yes (Other)
  Sender: FDA-Public Use
  Company Number: US-BRISTOL-MYERS SQUIBB COMPANY-16642936

PATIENT
  Age: 40 Year
  Sex: Male

DRUGS (1)
  1. HYDROXYUREA [Suspect]
     Indication: SICKLE CELL ANAEMIA
     Dosage: INTERRUPTED FOR 3 MONTHS AND RESTARTED

REACTIONS (3)
  - SPERMATOZOA MORPHOLOGY ABNORMAL [None]
  - SPERM CONCENTRATION DECREASED [None]
  - SPERMATOZOA PROGRESSIVE MOTILITY DECREASED [None]
